FAERS Safety Report 9200247 (Version 2)
Quarter: 2014Q1

REPORT INFORMATION
  Report Type: Spontaneous
  Country: US (occurrence: US)
  Receive Date: 20130329
  Receipt Date: 20140116
  Transmission Date: 20141002
  Serious: Yes (Hospitalization)
  Sender: FDA-Public Use
  Company Number: US-CUBIST PHARMACEUTICAL, INC.-2013CBST000232

PATIENT
  Sex: 0

DRUGS (3)
  1. CUBICIN [Suspect]
     Indication: ANTIBIOTIC THERAPY
     Dosage: UNK UNK, UNK
     Route: 042
  2. CUBICIN [Suspect]
     Indication: ENTEROCOCCAL INFECTION
  3. CUBICIN [Suspect]
     Indication: OFF LABEL USE

REACTIONS (1)
  - Infection [Unknown]
